FAERS Safety Report 18479083 (Version 1)
Quarter: 2020Q4

REPORT INFORMATION
  Report Type: Spontaneous
  Country: LU (occurrence: LU)
  Receive Date: 20201109
  Receipt Date: 20201109
  Transmission Date: 20210114
  Serious: Yes (Hospitalization, Other)
  Sender: FDA-Public Use
  Company Number: LU-MICRO LABS LIMITED-ML2020-03288

PATIENT
  Age: 18 Year
  Sex: Female

DRUGS (3)
  1. PIROXICAM. [Suspect]
     Active Substance: PIROXICAM
     Dosage: 20MG/3ML
  2. METAMIZOLE [Suspect]
     Active Substance: METAMIZOLE
  3. XYLOCAINE [Suspect]
     Active Substance: LIDOCAINE HYDROCHLORIDE
     Dosage: 30MG/3ML

REACTIONS (3)
  - Product administration error [Unknown]
  - Product use issue [Unknown]
  - Cerebellar syndrome [Recovered/Resolved]
